FAERS Safety Report 5252584-1 (Version None)
Quarter: 2007Q1

REPORT INFORMATION
  Report Type: 
  Country: None (occurrence: None)
  Receive Date: 20070227
  Receipt Date: 20070227
  Transmission Date: 20070707
  Serious: Yes (Life-Threatening)
  Sender: FDA-Public Use
  Company Number: None

PATIENT
  Age: 17 Year
  Sex: Male
  Weight: 64.8644 kg

DRUGS (1)
  1. SPORANOX [Suspect]
     Indication: RASH
     Dosage: 1 CAPSULE  TWICE DAY
     Dates: start: 20020510, end: 20020704

REACTIONS (1)
  - LYMPHOMA [None]
